FAERS Safety Report 4569180-1 (Version None)
Quarter: 2005Q1

REPORT INFORMATION
  Report Type: 
  Country: None (occurrence: None)
  Receive Date: 20050203
  Receipt Date: 20050127
  Transmission Date: 20050727
  Serious: Yes (Death, Hospitalization)
  Sender: FDA-Public Use
  Company Number: US-JNJFOC-20050106866

PATIENT
  Sex: Female
  Weight: 80.74 kg

DRUGS (7)
  1. DURAGESIC [Suspect]
     Route: 062
  2. DURAGESIC [Suspect]
     Route: 062
  3. DURAGESIC [Suspect]
     Route: 062
  4. PERCOCET [Concomitant]
     Route: 049
  5. PERCOCET [Concomitant]
     Dosage: 2 TABLETS EVERY 4-6 HOURS
     Route: 049
  6. BENADRYL [Concomitant]
  7. DIFLUCAN [Concomitant]

REACTIONS (2)
  - INFECTION [None]
  - THERAPEUTIC AGENT TOXICITY [None]
